FAERS Safety Report 8515659-7 (Version None)
Quarter: 2012Q3

REPORT INFORMATION
  Report Type: 
  Country: None (occurrence: None)
  Receive Date: 20120717
  Receipt Date: 20120711
  Transmission Date: 20120928
  Serious: Yes (Other)
  Sender: FDA-Public Use
  Company Number: PHHY2011JP48885

PATIENT
  Sex: Male

DRUGS (33)
  1. NEORAL [Suspect]
     Dosage: 450 MG
     Route: 048
     Dates: start: 20100805
  2. NEORAL [Suspect]
     Dosage: 120 MG, DAILY DOSE
     Route: 048
     Dates: start: 20110419, end: 20110830
  3. CELLCEPT [Suspect]
     Indication: RENAL TRANSPLANT
     Dosage: 500 MG
     Route: 048
     Dates: start: 20100701
  4. CELLCEPT [Suspect]
     Dosage: 2000 MG
     Route: 048
     Dates: start: 20100728
  5. METHYLPREDNISOLONE SODIUM SUCCINATE [Concomitant]
     Dosage: 250 MG
     Route: 042
  6. METHYLPREDNISOLONE SODIUM SUCCINATE [Concomitant]
     Dosage: 80 MG
     Route: 042
  7. PRAVASTATIN [Concomitant]
     Dosage: 10 MG
     Route: 048
     Dates: start: 20100812, end: 20110207
  8. ITRACONAZOLE [Concomitant]
     Dosage: 200 MG
     Route: 048
     Dates: start: 20100716
  9. NEORAL [Suspect]
     Dosage: 400 MG
     Route: 048
     Dates: start: 20100810
  10. CELLCEPT [Suspect]
     Dosage: 1500 MG
     Route: 048
     Dates: start: 20100812
  11. SIMULECT [Concomitant]
     Indication: RENAL TRANSPLANT
     Dosage: 20 MG
     Route: 042
     Dates: start: 20100728, end: 20100801
  12. NEORAL [Suspect]
     Dosage: 500 MG
     Route: 048
     Dates: start: 20100801
  13. RITUXAN [Concomitant]
     Dosage: 200 MG
     Route: 042
     Dates: start: 20100720, end: 20100720
  14. MEDROL [Concomitant]
     Dosage: 8 MG
     Route: 048
  15. MEDROL [Concomitant]
     Dosage: 4 MG
     Route: 048
  16. METHYLPREDNISOLONE SODIUM SUCCINATE [Concomitant]
     Indication: RENAL TRANSPLANT
     Dosage: 500 MG
     Route: 042
     Dates: start: 20100728
  17. METHYLPREDNISOLONE SODIUM SUCCINATE [Concomitant]
     Dosage: 60 MG
     Route: 042
  18. METHYLPREDNISOLONE SODIUM SUCCINATE [Concomitant]
     Dosage: 40 MG
     Route: 042
  19. NEORAL [Suspect]
     Dosage: 150 MG, DAILY DOSE
     Route: 048
     Dates: start: 20110302
  20. SANDIMMUNE [Suspect]
     Dosage: 100 MG
     Route: 042
     Dates: start: 20100728, end: 20100801
  21. VALGANCICLOVIR [Suspect]
     Indication: RENAL TRANSPLANT
     Dosage: 450 MG
     Route: 048
     Dates: start: 20100827, end: 20100906
  22. MEDROL [Concomitant]
     Dosage: 12 MG
     Route: 048
  23. NEORAL [Suspect]
     Indication: RENAL TRANSPLANT
     Dosage: 500 MG
     Route: 048
     Dates: start: 20100716, end: 20100727
  24. MEDROL [Concomitant]
     Dosage: 16 MG
     Route: 048
  25. SIMVASTATIN [Concomitant]
     Dosage: 5 MG
     Route: 048
     Dates: start: 20110208
  26. MEDROL [Concomitant]
     Indication: RENAL TRANSPLANT
     Dosage: 12 MG
     Route: 048
     Dates: start: 20100805
  27. LANSOPRAZOLE [Concomitant]
     Dosage: 15 MG
     Route: 048
     Dates: start: 20100716
  28. SULFAMETHOXAZOLE AND TRIMETHOPRIM [Concomitant]
     Dosage: 480 MG
     Route: 048
     Dates: start: 20100813, end: 20110207
  29. MEDROL [Concomitant]
     Dosage: 20 MG
     Route: 048
  30. MEDROL [Concomitant]
     Dosage: 6 MG
     Route: 048
  31. METHYLPREDNISOLONE SODIUM SUCCINATE [Concomitant]
     Dosage: 125 MG
     Route: 042
  32. URINORM [Concomitant]
     Dosage: 50 MG
     Route: 048
     Dates: start: 20100804
  33. AMLODIPINE [Concomitant]
     Dosage: 5 MG
     Route: 048
     Dates: start: 20100812

REACTIONS (1)
  - NEUTROPHIL COUNT DECREASED [None]
